FAERS Safety Report 9798751 (Version 1)
Quarter: 2013Q4

REPORT INFORMATION
  Report Type: Spontaneous
  Country: GB (occurrence: None)
  Receive Date: 20131231
  Receipt Date: 20131231
  Transmission Date: 20140711
  Serious: Yes (Hospitalization)
  Sender: FDA-Public Use
  Company Number: AUR-APL-2013-10675

PATIENT
  Age: 8 Decade
  Sex: 0

DRUGS (3)
  1. AMOXICILLIN (AMOXICILLIN) [Suspect]
     Indication: PRODUCT USED FOR UNKNOWN INDICATION
     Route: 048
     Dates: start: 20110614, end: 20110621
  2. TRIMETHOPRIM (TRIMETHOPRIM) [Suspect]
     Indication: PRODUCT USED FOR UNKNOWN INDICATION
     Dosage: (200 MG, 2 IN 1 D)
     Route: 048
     Dates: start: 20110321, end: 20110328
  3. DOXYCYCLINE (DOXYCYCLINE) [Suspect]
     Indication: PRODUCT USED FOR UNKNOWN INDICATION
     Dosage: (100 MG, 1 IN 1 D)
     Route: 048
     Dates: start: 20110704, end: 20110711

REACTIONS (2)
  - Enteritis [None]
  - Clostridium test positive [None]
